FAERS Safety Report 7493682-1 (Version None)
Quarter: 2011Q2

REPORT INFORMATION
  Report Type: 
  Country: None (occurrence: None)
  Receive Date: 20110513
  Receipt Date: 20110428
  Transmission Date: 20111010
  Serious: Yes (Death)
  Sender: FDA-Public Use
  Company Number: 032063

PATIENT
  Sex: Female

DRUGS (16)
  1. LOVENOX [Suspect]
     Indication: THROMBOSIS PROPHYLAXIS
     Dosage: (4000 IU, ONE POST SURGICAL INJECTION SUBCUTANEOUS)
     Route: 058
     Dates: start: 20110222, end: 20110222
  2. NISISCO (NISISCO ) [Suspect]
     Indication: HYPERTENSION
     Dosage: (1 TABLET UNIT DAILY ORAL)
     Route: 048
     Dates: end: 20110301
  3. XYZAL [Suspect]
     Dosage: (10 MG ORAL)
     Route: 048
     Dates: end: 20110301
  4. EUPRESSYL /00631801/ (EUPRESSYL) [Suspect]
     Indication: HYPERTENSION
     Dosage: (60 MG BID ORAL)
     Route: 048
     Dates: end: 20110301
  5. INIPOMP /01263201/ (INIPOMP) [Suspect]
     Dosage: (40 MG QD ORAL)
     Route: 048
     Dates: end: 20110301
  6. ART (ART) (NOT SPECIFIED) [Suspect]
     Indication: OSTEOARTHRITIS
     Dosage: (50 MG BID ORAL)
     Route: 048
     Dates: end: 20110301
  7. DAFALGAN /00020001/ (DAFALGAN ) (NOT SPECIFIED) [Suspect]
     Indication: ARTHRALGIA
     Dosage: (3 G ORAL)
     Route: 048
     Dates: start: 20110214, end: 20110301
  8. XANAX [Suspect]
     Indication: ANXIETY
     Dosage: (0.5 MG QD ORAL)
     Route: 048
     Dates: end: 20110301
  9. PERFALGAN (PERFALGAN ) (NOT SPECIFIED) [Suspect]
     Indication: ARTHRALGIA
     Dosage: (1 G 1X/6 HOURS INTRAVENOUS (NOT OTHERWISE SPECIFIED))
     Route: 042
     Dates: start: 20110222, end: 20110223
  10. CELIPROLOL (CELIPROLOL ARROW ) [Suspect]
     Indication: HYPERTENSION
     Dosage: (200 MG QD ORAL)
     Route: 048
     Dates: end: 20110301
  11. LASIX [Suspect]
     Indication: HYPERTENSION
     Dosage: (60 MG QD ORAL)
     Route: 048
     Dates: end: 20110301
  12. TARDYFERON-FOL (TARDYFERON B9) (NOT SPECIFIED) [Suspect]
     Indication: ANAEMIA
     Dosage: (1 TABLET DAILY ORAL)
     Route: 048
     Dates: start: 20110223, end: 20110301
  13. PRADAXA [Suspect]
     Indication: THROMBOSIS PROPHYLAXIS
     Dosage: (110 MG BID ORAL)
     Route: 048
     Dates: start: 20110223, end: 20110228
  14. TRAMADOL HCL [Suspect]
     Indication: ARTHRALGIA
     Dosage: (300 MG INTRAVENOUS (NOT OTHERWISE SPECIFIED)), (50 MG TID ORAL)
     Route: 042
     Dates: start: 20110225, end: 20110301
  15. TRAMADOL HCL [Suspect]
     Indication: ARTHRALGIA
     Dosage: (300 MG INTRAVENOUS (NOT OTHERWISE SPECIFIED)), (50 MG TID ORAL)
     Route: 042
     Dates: start: 20110222, end: 20110223
  16. HYDERGINE [Suspect]
     Dosage: (4.5 MG QD ORAL)
     Route: 048
     Dates: end: 20110301

REACTIONS (11)
  - RED BLOOD CELL COUNT DECREASED [None]
  - HAEMOGLOBIN DECREASED [None]
  - DYSPNOEA [None]
  - VENOUS INSUFFICIENCY [None]
  - CARDIO-RESPIRATORY ARREST [None]
  - KNEE ARTHROPLASTY [None]
  - WHITE BLOOD CELL COUNT INCREASED [None]
  - SUDDEN DEATH [None]
  - OVERDOSE [None]
  - AORTIC BRUIT [None]
  - PROCEDURAL PAIN [None]
